FAERS Safety Report 12269449 (Version 1)
Quarter: 2016Q2

REPORT INFORMATION
  Report Type: Spontaneous
  Country: JP (occurrence: JP)
  Receive Date: 20160414
  Receipt Date: 20160414
  Transmission Date: 20160815
  Serious: Yes (Other)
  Sender: FDA-Public Use
  Company Number: JP-FRESENIUS KABI-FK201601900

PATIENT
  Age: 63 Year
  Sex: Female

DRUGS (4)
  1. CISPLATIN (MANUFACTURER UNKNOWN) [Suspect]
     Active Substance: CISPLATIN
     Indication: OVARIAN CLEAR CELL CARCINOMA
     Route: 065
  2. WARFARIN [Suspect]
     Active Substance: WARFARIN
     Indication: OVARIAN CLEAR CELL CARCINOMA
  3. APREPITANT. [Suspect]
     Active Substance: APREPITANT
     Indication: OVARIAN CLEAR CELL CARCINOMA
  4. IRINOTECAN [Suspect]
     Active Substance: IRINOTECAN
     Indication: OVARIAN CLEAR CELL CARCINOMA

REACTIONS (1)
  - Deep vein thrombosis [Unknown]
